FAERS Safety Report 24065378 (Version 1)
Quarter: 2024Q3

REPORT INFORMATION
  Report Type: Spontaneous
  Country: GB (occurrence: GB)
  Receive Date: 20240709
  Receipt Date: 20240709
  Transmission Date: 20241016
  Serious: Yes (Other)
  Sender: OTSUKA
  Company Number: GB-OTSUKA-2024_018477

PATIENT

DRUGS (1)
  1. TOLVAPTAN [Suspect]
     Active Substance: TOLVAPTAN
     Indication: Congenital cystic kidney disease
     Dosage: UNK UNK, QD (MEDIAN TOTAL DAILY DOSE WAS 120 MG [RANGE 60-120])
     Route: 065

REACTIONS (2)
  - Angioedema [Unknown]
  - Drug intolerance [Unknown]
